FAERS Safety Report 23932486 (Version 1)
Quarter: 2024Q2

REPORT INFORMATION
  Report Type: Spontaneous
  Country: GB (occurrence: GB)
  Receive Date: 20240603
  Receipt Date: 20240603
  Transmission Date: 20240717
  Serious: Yes (Other)
  Sender: FDA-Public Use
  Company Number: None

PATIENT
  Age: 25 Year
  Sex: Female
  Weight: 48 kg

DRUGS (3)
  1. SERTRALINE [Suspect]
     Active Substance: SERTRALINE HYDROCHLORIDE
     Indication: Ill-defined disorder
     Dosage: UNK
     Route: 065
     Dates: start: 20240522
  2. FLUOXETINE [Concomitant]
     Active Substance: FLUOXETINE HYDROCHLORIDE
     Indication: Ill-defined disorder
     Dosage: UNK, QD (TAKE ONE DAILY)
     Route: 065
     Dates: start: 20240522
  3. SERTRALINE [Concomitant]
     Active Substance: SERTRALINE HYDROCHLORIDE
     Indication: Ill-defined disorder
     Dosage: UNK, QD (TAKE ONE DAILY )
     Route: 065
     Dates: start: 20240411, end: 20240522

REACTIONS (2)
  - Haematochezia [Recovering/Resolving]
  - Heavy menstrual bleeding [Recovering/Resolving]

NARRATIVE: CASE EVENT DATE: 20240522
